FAERS Safety Report 5796528-2 (Version None)
Quarter: 2008Q3

REPORT INFORMATION
  Report Type: 
  Country: None (occurrence: None)
  Receive Date: 20080701
  Receipt Date: 20080620
  Transmission Date: 20090109
  Serious: Yes (Other)
  Sender: FDA-Public Use
  Company Number: PHHY2008IT11583

PATIENT
  Sex: Male

DRUGS (3)
  1. ZOMETA [Suspect]
     Dosage: 4 MG
     Route: 042
     Dates: start: 20070105, end: 20080310
  2. NOVANTRONE [Concomitant]
     Dosage: 12 MG/DAY
     Route: 042
  3. DELTACORTENE [Concomitant]
     Dosage: 50 MG/DAY
     Route: 048

REACTIONS (1)
  - OSTEONECROSIS [None]
